FAERS Safety Report 25655752 (Version 1)
Quarter: 2025Q3

REPORT INFORMATION
  Report Type: Spontaneous
  Country: CH (occurrence: CH)
  Receive Date: 20250807
  Receipt Date: 20250807
  Transmission Date: 20251020
  Serious: Yes (Hospitalization, Other)
  Sender: BRISTOL-MYERS SQUIBB COMPANY
  Company Number: None

PATIENT
  Age: 54 Year
  Sex: Female
  Weight: 46.6 kg

DRUGS (22)
  1. CETUXIMAB [Suspect]
     Active Substance: CETUXIMAB
     Indication: Colon cancer metastatic
     Route: 042
     Dates: start: 20250403
  2. KRAZATI [Interacting]
     Active Substance: ADAGRASIB
     Indication: Colon cancer metastatic
     Route: 048
     Dates: start: 20250417, end: 20250612
  3. KRAZATI [Interacting]
     Active Substance: ADAGRASIB
     Route: 048
     Dates: start: 20250616, end: 20250618
  4. KRAZATI [Interacting]
     Active Substance: ADAGRASIB
     Route: 048
     Dates: start: 20250619
  5. TACROLIMUS [Interacting]
     Active Substance: TACROLIMUS
     Indication: Product used for unknown indication
     Route: 048
     Dates: start: 202306, end: 20250425
  6. TACROLIMUS [Interacting]
     Active Substance: TACROLIMUS
     Route: 048
     Dates: start: 20250502, end: 20250612
  7. TACROLIMUS [Interacting]
     Active Substance: TACROLIMUS
     Route: 048
     Dates: start: 20250621
  8. EVEROLIMUS [Interacting]
     Active Substance: EVEROLIMUS
     Indication: Product used for unknown indication
     Route: 048
     Dates: start: 202306, end: 20250424
  9. EVEROLIMUS [Interacting]
     Active Substance: EVEROLIMUS
     Route: 048
     Dates: start: 20250502, end: 20250612
  10. EVEROLIMUS [Interacting]
     Active Substance: EVEROLIMUS
     Route: 048
     Dates: start: 20250616
  11. CALCIUM\CHOLECALCIFEROL [Concomitant]
     Active Substance: CALCIUM\CHOLECALCIFEROL
     Indication: Product used for unknown indication
     Route: 048
  12. OMEPRAX [Concomitant]
     Indication: Product used for unknown indication
     Route: 048
  13. SODIUM PICOSULFATE [Concomitant]
     Active Substance: SODIUM PICOSULFATE
     Indication: Product used for unknown indication
  14. ZOLEDRONSAEURE [Concomitant]
     Indication: Product used for unknown indication
     Dates: end: 202408
  15. VIBRAMYCIN [DOXYCYCLINE CARRAGENATE] [Concomitant]
     Indication: Product used for unknown indication
     Route: 048
     Dates: start: 20250422, end: 20250426
  16. MORPHINE SULFATE [Concomitant]
     Active Substance: MORPHINE SULFATE
     Indication: Product used for unknown indication
     Dosage: RETARD
     Route: 048
  17. METAMIZOLE [Concomitant]
     Active Substance: METAMIZOLE
     Indication: Product used for unknown indication
     Route: 048
  18. MORPHINE HYDROCHLORIDE [Concomitant]
     Active Substance: MORPHINE HYDROCHLORIDE
     Indication: Product used for unknown indication
  19. MOVICOL [Concomitant]
     Active Substance: POLYETHYLENE GLYCOL 3350\POTASSIUM CHLORIDE\SODIUM BICARBONATE\SODIUM CHLORIDE
     Indication: Product used for unknown indication
  20. LOPERAMID MEPHA [Concomitant]
     Indication: Product used for unknown indication
  21. ONDANSETRON [Concomitant]
     Active Substance: ONDANSETRON
     Indication: Product used for unknown indication
  22. METOCLOPRAMIDE HYDROCHLORIDE [Concomitant]
     Active Substance: METOCLOPRAMIDE HYDROCHLORIDE
     Indication: Product used for unknown indication

REACTIONS (5)
  - Gastrointestinal disorder [Recovering/Resolving]
  - Anaemia [Recovering/Resolving]
  - Thrombocytopenia [Recovering/Resolving]
  - Acute kidney injury [Recovering/Resolving]
  - Potentiating drug interaction [Recovering/Resolving]

NARRATIVE: CASE EVENT DATE: 20250423
